FAERS Safety Report 11118982 (Version 1)
Quarter: 2015Q2

REPORT INFORMATION
  Report Type: Spontaneous
  Country: None (occurrence: None)
  Receive Date: 20150515
  Receipt Date: 20150515
  Transmission Date: 20150821
  Serious: Yes (Disabling)
  Sender: FDA-Public Use
  Company Number: None

PATIENT
  Age: 48 Year
  Sex: Female

DRUGS (3)
  1. CIPRO [Suspect]
     Active Substance: CIPROFLOXACIN HYDROCHLORIDE
     Indication: INFECTION
     Dosage: 1 PILL 2X A DAY TWICE DAILY
     Dates: start: 20150412, end: 20150413
  2. VITAMIN D [Concomitant]
     Active Substance: CHOLECALCIFEROL
  3. CALCIUM FISH OIL [Concomitant]

REACTIONS (3)
  - Tendonitis [None]
  - Movement disorder [None]
  - Urticaria [None]

NARRATIVE: CASE EVENT DATE: 20150412
